FAERS Safety Report 25119379 (Version 2)
Quarter: 2025Q3

REPORT INFORMATION
  Report Type: Spontaneous
  Country: EU (occurrence: EU)
  Receive Date: 20250325
  Receipt Date: 20250803
  Transmission Date: 20251021
  Serious: Yes (Other)
  Sender: ALEXION PHARMACEUTICALS
  Company Number: EU-ASTRAZENECA-202503EEA018464DE

PATIENT
  Sex: Male

DRUGS (13)
  1. DAPAGLIFLOZIN [Suspect]
     Active Substance: DAPAGLIFLOZIN
     Route: 065
  2. SACUBITRIL [Concomitant]
     Active Substance: SACUBITRIL
     Route: 065
  3. VALSARTAN [Concomitant]
     Active Substance: VALSARTAN
     Route: 065
  4. APIXABAN [Concomitant]
     Active Substance: APIXABAN
     Route: 065
  5. BISOPROLOL [Concomitant]
     Active Substance: BISOPROLOL
     Route: 065
  6. EPLERENONE [Concomitant]
     Active Substance: EPLERENONE
     Route: 065
  7. ATORVASTATIN [Concomitant]
     Active Substance: ATORVASTATIN
     Route: 065
  8. AMIODARONE [Concomitant]
     Active Substance: AMIODARONE
     Route: 065
  9. ASPIRIN [Concomitant]
     Active Substance: ASPIRIN
     Route: 065
  10. CLOPIDOGREL [Concomitant]
     Active Substance: CLOPIDOGREL BISULFATE
     Route: 065
  11. PREDNISOLONE [Concomitant]
     Active Substance: PREDNISOLONE
     Route: 065
  12. SALMETEROL [Concomitant]
     Active Substance: SALMETEROL
     Route: 065
  13. FLUTICASONE [Concomitant]
     Active Substance: FLUTICASONE
     Route: 065

REACTIONS (10)
  - Lymphoma [Unknown]
  - Pulmonary vein occlusion [Unknown]
  - Cardiac failure [Unknown]
  - Syncope [Unknown]
  - Cardiac sarcoidosis [Unknown]
  - Tricuspid valve incompetence [Unknown]
  - Atrial fibrillation [Unknown]
  - Haemoptysis [Unknown]
  - Fall [Unknown]
  - Injury [Unknown]
